FAERS Safety Report 7724723-1 (Version None)
Quarter: 2011Q3

REPORT INFORMATION
  Report Type: 
  Country: None (occurrence: None)
  Receive Date: 20110901
  Receipt Date: 20110817
  Transmission Date: 20111222
  Serious: Yes (Other)
  Sender: FDA-Public Use
  Company Number: US-BAYER-2011-076277

PATIENT
  Sex: Female

DRUGS (1)
  1. ALKA-SELTZER (UNKNOWN FORMULATION) [Suspect]
     Route: 048

REACTIONS (3)
  - MATERNAL EXPOSURE DURING PREGNANCY [None]
  - ABORTION SPONTANEOUS [None]
  - BLOOD PRESSURE INCREASED [None]
